FAERS Safety Report 4309577-8 (Version None)
Quarter: 2004Q1

REPORT INFORMATION
  Report Type: 
  Country: None (occurrence: None)
  Receive Date: 20040301
  Receipt Date: 20040219
  Transmission Date: 20041129
  Serious: Yes (Life-Threatening, Hospitalization)
  Sender: FDA-Public Use
  Company Number: 2003189139JP

PATIENT
  Age: 14 Year
  Sex: Male
  Weight: 33.6 kg

DRUGS (7)
  1. GENOTROPIN [Suspect]
     Indication: HYPOPITUITARISM
     Dosage: 1.2 MG, QD, SUBCUTANEOUS
     Route: 058
     Dates: start: 20030820, end: 20031106
  2. NORDITROPIN [Suspect]
     Indication: HYPOPITUITARISM
     Dosage: 1.2 M, DAILY, SUBCUTANEOUS
     Route: 058
     Dates: start: 20030403, end: 20030820
  3. DESMOPRESSIN (DESMOPRESSIN) [Concomitant]
  4. NAUZELIN (DOMPERIDONE) [Concomitant]
  5. MERISLON (BETAHISTINE HYDROCHLORIDE) [Concomitant]
  6. CORTRIL [Concomitant]
  7. VALPROIC ACID [Concomitant]

REACTIONS (3)
  - GERM CELL CANCER [None]
  - RECURRENT CANCER [None]
  - VOMITING [None]
